FAERS Safety Report 8781583 (Version 2)
Quarter: 2013Q4

REPORT INFORMATION
  Report Type: Spontaneous
  Country: GB (occurrence: GB)
  Receive Date: 20120913
  Receipt Date: 20131031
  Transmission Date: 20140711
  Serious: Yes (Other)
  Sender: FDA-Public Use
  Company Number: GB-009507513-1209GBR002573

PATIENT
  Sex: Female

DRUGS (2)
  1. NEXPLANON [Suspect]
     Dosage: UNK
     Dates: start: 20111220
  2. NEXPLANON [Suspect]
     Dosage: UNK
     Dates: end: 20111215

REACTIONS (4)
  - Abortion induced [Recovered/Resolved]
  - Device difficult to use [Recovered/Resolved]
  - Unintended pregnancy [Recovered/Resolved]
  - Device difficult to use [Recovered/Resolved]
